FAERS Safety Report 17697260 (Version 1)
Quarter: 2020Q2

REPORT INFORMATION
  Report Type: Spontaneous
  Country: US (occurrence: US)
  Receive Date: 20200422
  Receipt Date: 20200422
  Transmission Date: 20200714
  Serious: Yes (Death)
  Sender: FDA-Public Use
  Company Number: None

PATIENT
  Age: 65 Year
  Sex: Male

DRUGS (13)
  1. REGLAN [Concomitant]
     Active Substance: METOCLOPRAMIDE HYDROCHLORIDE
  2. BUMEX [Concomitant]
     Active Substance: BUMETANIDE
  3. NIACINAMIDE [Concomitant]
     Active Substance: NIACINAMIDE
  4. PLAVIX [Concomitant]
     Active Substance: CLOPIDOGREL BISULFATE
  5. MULTI VIT [Concomitant]
     Active Substance: VITAMINS
  6. NOVOLOG [Concomitant]
     Active Substance: INSULIN ASPART
  7. PREDNISONE. [Concomitant]
     Active Substance: PREDNISONE
  8. GARLIC. [Concomitant]
     Active Substance: GARLIC
  9. PROTONIX [Concomitant]
     Active Substance: PANTOPRAZOLE SODIUM
  10. RANEXA [Concomitant]
     Active Substance: RANOLAZINE
  11. AZATHIOPRINE 50MG TAB [Suspect]
     Active Substance: AZATHIOPRINE
     Indication: RENAL TRANSPLANT
     Route: 048
     Dates: start: 20140131, end: 20190916
  12. ACITRETIN. [Concomitant]
     Active Substance: ACITRETIN
  13. ZETIA [Concomitant]
     Active Substance: EZETIMIBE

REACTIONS (1)
  - Death [None]

NARRATIVE: CASE EVENT DATE: 20190916
